FAERS Safety Report 8778963 (Version 2)
Quarter: 2012Q4

REPORT INFORMATION
  Report Type: 
  Country: FR (occurrence: FR)
  Receive Date: 20120912
  Receipt Date: 20121116
  Transmission Date: 20130627
  Serious: Yes (Other)
  Sender: FDA-Public Use
  Company Number: FR-JNJFOC-20120901355

PATIENT
  Age: 79 Year
  Sex: Male
  Weight: 74 kg

DRUGS (5)
  1. ZYTIGA [Suspect]
     Indication: PROSTATE CANCER METASTATIC
     Route: 048
     Dates: start: 20120515, end: 20120530
  2. ZYTIGA [Suspect]
     Indication: PROSTATE CANCER METASTATIC
     Route: 048
     Dates: start: 20120612, end: 20120828
  3. METFORMINE [Concomitant]
     Indication: DIABETES MELLITUS
     Route: 048
  4. AMAREL [Concomitant]
     Indication: DIABETES MELLITUS
     Route: 048
  5. ATENOLOL [Concomitant]
     Indication: HYPERTENSION
     Route: 048

REACTIONS (2)
  - Asthenia [Recovered/Resolved]
  - Pain [Unknown]
